FAERS Safety Report 8797966 (Version 2)
Quarter: 2015Q1

REPORT INFORMATION
  Report Type: Report from Study
  Country: US (occurrence: US)
  Receive Date: 20120919
  Receipt Date: 20150304
  Transmission Date: 20150721
  Serious: Yes (Death)
  Sender: FDA-Public Use
  Company Number: US-ROCHE-1095369

PATIENT
  Age: 73 Year
  Sex: Male
  Weight: 82 kg

DRUGS (15)
  1. NEXAVAR [Concomitant]
     Active Substance: SORAFENIB
  2. DECADRON [Concomitant]
     Active Substance: DEXAMETHASONE
     Route: 042
  3. MEGACE [Concomitant]
     Active Substance: MEGESTROL ACETATE
  4. AVASTIN [Suspect]
     Active Substance: BEVACIZUMAB
     Indication: RENAL CANCER
     Route: 042
     Dates: start: 20080429
  5. ARANESP [Concomitant]
     Active Substance: DARBEPOETIN ALFA
  6. ALBUTEROL. [Concomitant]
     Active Substance: ALBUTEROL
  7. TUSSIONEX (UNITED STATES) [Concomitant]
  8. AVASTIN [Suspect]
     Active Substance: BEVACIZUMAB
     Indication: MALIGNANT URINARY TRACT NEOPLASM
     Route: 042
  9. MEDROL [Concomitant]
     Active Substance: METHYLPREDNISOLONE
  10. DECADRON [Concomitant]
     Active Substance: DEXAMETHASONE
     Route: 065
  11. SUTENT [Concomitant]
     Active Substance: SUNITINIB MALATE
  12. TYLENOL [Concomitant]
     Active Substance: ACETAMINOPHEN
  13. BENADRYL [Concomitant]
     Active Substance: DIPHENHYDRAMINE HYDROCHLORIDE
     Route: 042
  14. TOPROL XL [Concomitant]
     Active Substance: METOPROLOL SUCCINATE
  15. SPIRIVA [Concomitant]
     Active Substance: TIOTROPIUM BROMIDE MONOHYDRATE

REACTIONS (17)
  - Chronic kidney disease [Unknown]
  - Cachexia [Unknown]
  - Death [Fatal]
  - Diarrhoea [Unknown]
  - Anaemia [Unknown]
  - Nausea [Unknown]
  - Asthenia [Unknown]
  - Chronic obstructive pulmonary disease [Unknown]
  - Cough [Unknown]
  - Iron deficiency [Unknown]
  - Dyspnoea exertional [Unknown]
  - Weight decreased [Unknown]
  - Fatigue [Unknown]
  - Peripheral swelling [Unknown]
  - Haemoptysis [Unknown]
  - Catheter site induration [Unknown]
  - Rash [Unknown]

NARRATIVE: CASE EVENT DATE: 20080513
